FAERS Safety Report 8640864 (Version 2)
Quarter: 2012Q4

REPORT INFORMATION
  Report Type: Report from Study
  Country: JP (occurrence: JP)
  Receive Date: 20120628
  Receipt Date: 20121015
  Transmission Date: 20130627
  Serious: Yes (Hospitalization)
  Sender: FDA-Public Use
  Company Number: JP-SANOFI-AVENTIS-2011SA036564

PATIENT
  Age: 85 Year
  Sex: Female
  Weight: 46 kg

DRUGS (18)
  1. PLAVIX [Suspect]
     Indication: ANGINA UNSTABLE
     Route: 048
     Dates: start: 20100305, end: 20100305
  2. PLAVIX [Suspect]
     Indication: ANGINA UNSTABLE
     Route: 048
     Dates: start: 20100306
  3. ASPIRIN [Suspect]
     Indication: ANGINA UNSTABLE
     Route: 048
  4. ASPIRIN [Suspect]
     Indication: CEREBRAL INFARCTION
     Route: 048
  5. HEPARIN [Suspect]
     Indication: ANGINA UNSTABLE
     Dosage: Dose:12000 unit(s)
     Route: 041
     Dates: start: 20100305, end: 20100308
  6. HEPARIN [Suspect]
     Indication: ANGINA UNSTABLE
     Dosage: Dose:3000 unit(s)
     Route: 042
     Dates: start: 20110111, end: 20110111
  7. HEPARIN [Suspect]
     Indication: ANGINA UNSTABLE
     Dosage: Dose:8000 unit(s)
     Route: 042
     Dates: start: 20110125, end: 20110125
  8. LANIRAPID [Concomitant]
     Indication: ANGINA UNSTABLE
     Route: 048
  9. ADALAT CR [Concomitant]
     Indication: HYPERTENSION
     Route: 048
  10. FLUITRAN [Concomitant]
     Indication: HYPERTENSION
     Route: 048
     Dates: end: 20110126
  11. SIGMART [Concomitant]
     Indication: ANGINA UNSTABLE
     Route: 048
  12. PERSANTIN [Concomitant]
     Indication: ANGINA UNSTABLE
     Route: 048
  13. VALSARTAN [Concomitant]
     Indication: HYPERTENSION
     Route: 048
     Dates: end: 20110126
  14. MUCOSTA [Concomitant]
     Indication: GASTRITIS
     Route: 048
     Dates: end: 20110126
  15. NITRODERM TTS [Concomitant]
     Indication: ANGINA UNSTABLE
     Route: 062
  16. TORASEMIDE [Concomitant]
     Indication: CARDIAC FAILURE
     Route: 048
     Dates: start: 20100309
  17. ARTIST [Concomitant]
     Route: 048
     Dates: start: 20100312, end: 20110126
  18. WARFARIN [Concomitant]
     Route: 048
     Dates: start: 20100310

REACTIONS (2)
  - Vessel puncture site haemorrhage [Recovered/Resolved]
  - Coronary artery restenosis [Recovered/Resolved]
